FAERS Safety Report 5232240-6 (Version None)
Quarter: 2007Q1

REPORT INFORMATION
  Report Type: 
  Country: None (occurrence: None)
  Receive Date: 20070207
  Receipt Date: 20070124
  Transmission Date: 20070707
  Serious: Yes (Hospitalization)
  Sender: FDA-Public Use
  Company Number: PHRM2007FR00523

PATIENT
  Age: 44 Year
  Sex: Male
  Weight: 61 kg

DRUGS (6)
  1. DEPAKENE [Suspect]
     Indication: EPILEPSY
     Dosage: 500 MG, TID
     Route: 048
     Dates: start: 19960101
  2. URBANYL [Suspect]
     Indication: EPILEPSY
     Dosage: 5 MG, QD
     Route: 048
     Dates: start: 19960101
  3. KENZEN [Suspect]
     Dosage: 4 MG, QD
     Route: 048
     Dates: start: 20040101
  4. SINGULAIR [Suspect]
     Dosage: 10 MG, QD
     Route: 048
     Dates: start: 20040101
  5. DESLORATADINE [Suspect]
     Indication: RHINITIS
     Dosage: 5 MG, QD
     Route: 048
     Dates: start: 20061117, end: 20061123
  6. TEGRETOL [Suspect]
     Indication: EPILEPSY
     Dosage: 400 MG, TID
     Route: 048
     Dates: start: 19960101

REACTIONS (15)
  - ALANINE AMINOTRANSFERASE INCREASED [None]
  - ASPARTATE AMINOTRANSFERASE INCREASED [None]
  - BRADYCARDIA [None]
  - CHOLINERGIC SYNDROME [None]
  - DIZZINESS [None]
  - GAMMA-GLUTAMYLTRANSFERASE INCREASED [None]
  - HEADACHE [None]
  - HYPERHIDROSIS [None]
  - HYPOTHERMIA [None]
  - MIOSIS [None]
  - PHOTOPHOBIA [None]
  - RHINITIS [None]
  - SALIVARY HYPERSECRETION [None]
  - TRANSAMINASES INCREASED [None]
  - VOMITING [None]
